FAERS Safety Report 7399146-8 (Version None)
Quarter: 2011Q1

REPORT INFORMATION
  Report Type: 
  Country: None (occurrence: None)
  Receive Date: 20110301
  Receipt Date: 20100309
  Transmission Date: 20110831
  Serious: Yes (Hospitalization)
  Sender: FDA-Public Use
  Company Number: RB-04298-2010

PATIENT
  Age: 57 Year
  Sex: Male

DRUGS (2)
  1. SUBOXONE [Suspect]
     Indication: DRUG DEPENDENCE
     Dosage: 8 MG BID SUBLINGUAL, 8 MG BID SUBLINGUAL
     Route: 060
     Dates: start: 20080901, end: 20100101
  2. SUBOXONE [Suspect]
     Indication: DRUG DEPENDENCE
     Dosage: 8 MG BID SUBLINGUAL, 8 MG BID SUBLINGUAL
     Route: 060
     Dates: start: 20100101

REACTIONS (4)
  - FALL [None]
  - ARTHRALGIA [None]
  - INJURY [None]
  - HIP FRACTURE [None]
